FAERS Safety Report 16531175 (Version 1)
Quarter: 2019Q3

REPORT INFORMATION
  Report Type: Report from Study
  Country: US (occurrence: US)
  Receive Date: 20190704
  Receipt Date: 20190704
  Transmission Date: 20191004
  Serious: Yes (Other)
  Sender: FDA-Public Use
  Company Number: US-UCBSA-2017003714

PATIENT

DRUGS (4)
  1. IMITREX [Concomitant]
     Active Substance: SUMATRIPTAN SUCCINATE
     Indication: MIGRAINE
  2. LEVETIRACETAM. [Suspect]
     Active Substance: LEVETIRACETAM
     Indication: MIGRAINE
     Dosage: 2000 MG DAILY
  3. TOPAMAX [Concomitant]
     Active Substance: TOPIRAMATE
     Indication: MIGRAINE
     Dosage: UNK
  4. HYDROCODONE [Suspect]
     Active Substance: HYDROCODONE
     Indication: PAIN

REACTIONS (10)
  - Decreased appetite [Unknown]
  - Paraesthesia [Unknown]
  - Migraine [Unknown]
  - Hypoaesthesia [Unknown]
  - Tremor [Unknown]
  - Seizure [Unknown]
  - Weight increased [Unknown]
  - Aura [Unknown]
  - Head injury [Unknown]
  - Anxiety [Unknown]
